FAERS Safety Report 8891609 (Version 1)
Quarter: 2012Q4

REPORT INFORMATION
  Report Type: 
  Country: US (occurrence: US)
  Receive Date: 20121107
  Receipt Date: 20121107
  Transmission Date: 20130627
  Serious: No
  Sender: FDA-Public Use
  Company Number: US-AMGEN-USASP2011056326

PATIENT
  Age: 43 Year
  Sex: Female

DRUGS (11)
  1. ENBREL [Suspect]
     Indication: PRODUCT USED FOR UNKNOWN INDICATION
     Dosage: 50 mg, qwk
  2. XANAX [Concomitant]
     Dosage: 0.25 mg, UNK
  3. ZOLOFT [Concomitant]
     Dosage: 25 mg, UNK
  4. METHOTREXATE [Concomitant]
     Dosage: 2.5 mg, UNK
  5. PREDNISONE [Concomitant]
     Dosage: 1 mg, UNK
  6. VICODIN [Concomitant]
     Dosage: UNK
  7. IBUPROFEN [Concomitant]
     Dosage: 400 mg, UNK
  8. VITAMIN D [Concomitant]
     Dosage: UNK
  9. FOLIC ACID [Concomitant]
     Dosage: 5 mg, UNK
  10. CYCLOSPORINE [Concomitant]
     Dosage: 100 mg, UNK
  11. DULCOLAX [Concomitant]
     Dosage: 5 mg, UNK

REACTIONS (1)
  - Rash [Unknown]
